FAERS Safety Report 9311858 (Version 4)
Quarter: 2013Q3

REPORT INFORMATION
  Report Type: Spontaneous
  Country: GB (occurrence: GB)
  Receive Date: 20130528
  Receipt Date: 20130927
  Transmission Date: 20140515
  Serious: Yes (Hospitalization, Other)
  Sender: FDA-Public Use
  Company Number: PHFR2013GB003061

PATIENT
  Age: 35 Year
  Sex: Male

DRUGS (1)
  1. CLOZARIL [Suspect]
     Indication: SCHIZOPHRENIA
     Dosage: UNK
     Route: 048
     Dates: start: 20090417

REACTIONS (5)
  - Anosognosia [Unknown]
  - Mental impairment [Unknown]
  - Apathy [Unknown]
  - White blood cell count increased [Unknown]
  - Neutrophil count increased [Unknown]
